FAERS Safety Report 4698406-9 (Version None)
Quarter: 2005Q2

REPORT INFORMATION
  Report Type: 
  Country: None (occurrence: None)
  Receive Date: 20050621
  Receipt Date: 20050606
  Transmission Date: 20051028
  Serious: Yes (Hospitalization)
  Sender: FDA-Public Use
  Company Number: 2005S1004413

PATIENT
  Age: 73 Year
  Sex: Female

DRUGS (6)
  1. APOMORPHINE HYDROCHLORIDE (APOMORPHINE HYDROCHLORIDE)  (10 MG) [Suspect]
     Indication: PARKINSON'S DISEASE
     Dosage: 100 MG; Q24;SC
     Route: 058
     Dates: start: 20040501
  2. MADOPAR (LEVODOPA/BENSERAZIDE HYDROCHLORIDE) [Suspect]
     Indication: PARKINSON'S DISEASE
     Dosage: 875 MG; PO
     Route: 048
  3. DIGOXIN [Concomitant]
  4. TROSPUM CHLORIDE [Concomitant]
  5. ZOPICLONE [Concomitant]
  6. RAMIPRIL [Concomitant]

REACTIONS (1)
  - COOMBS POSITIVE HAEMOLYTIC ANAEMIA [None]
